FAERS Safety Report 25095891 (Version 2)
Quarter: 2025Q4

REPORT INFORMATION
  Report Type: Spontaneous
  Country: CO (occurrence: CO)
  Receive Date: 20250319
  Receipt Date: 20251215
  Transmission Date: 20260118
  Serious: Yes (Hospitalization, Disabling, Other)
  Sender: REGENERON
  Company Number: CO-SA-2025SA080137

PATIENT
  Age: 67 Year
  Sex: Female

DRUGS (1)
  1. PRALUENT [Suspect]
     Active Substance: ALIROCUMAB
     Indication: Hypercholesterolaemia
     Dosage: 150 MG, QOW, SOLUTION FOR INJECTION
     Route: 058
     Dates: start: 2024

REACTIONS (8)
  - Vomiting [Recovered/Resolved]
  - Abdominal pain [Recovered/Resolved]
  - Cough [Recovering/Resolving]
  - Osteoarthritis [Recovered/Resolved with Sequelae]
  - Asthenia [Unknown]
  - Bone pain [Unknown]
  - Diarrhoea [Recovered/Resolved]
  - Influenza [Recovering/Resolving]

NARRATIVE: CASE EVENT DATE: 20241201
